FAERS Safety Report 4378741-4 (Version None)
Quarter: 2004Q2

REPORT INFORMATION
  Report Type: 
  Country: None (occurrence: None)
  Receive Date: 20040609
  Receipt Date: 20040520
  Transmission Date: 20050107
  Serious: Yes (Hospitalization, Other)
  Sender: FDA-Public Use
  Company Number: USA040568089

PATIENT
  Sex: Male

DRUGS (8)
  1. HUMULIN 70/30 [Suspect]
     Dosage: 104 U DAY
     Dates: start: 19910101
  2. METOPROLOL SUCCINATE [Concomitant]
  3. ALTACE [Concomitant]
  4. LASIX [Concomitant]
  5. XANAX [Concomitant]
  6. ZOCOR [Concomitant]
  7. COUMADIN [Concomitant]
  8. DIGOXIN [Concomitant]

REACTIONS (9)
  - ABASIA [None]
  - ASTHMA [None]
  - BLOOD GLUCOSE INCREASED [None]
  - BRONCHITIS CHRONIC [None]
  - CARDIAC FAILURE CONGESTIVE [None]
  - MYOCARDIAL INFARCTION [None]
  - SLEEP APNOEA SYNDROME [None]
  - TRANSIENT ISCHAEMIC ATTACK [None]
  - VISUAL DISTURBANCE [None]
